FAERS Safety Report 20564638 (Version 1)
Quarter: 2022Q1

REPORT INFORMATION
  Report Type: Spontaneous
  Country: NL (occurrence: NL)
  Receive Date: 20220308
  Receipt Date: 20220308
  Transmission Date: 20220423
  Serious: Yes (Hospitalization)
  Sender: FDA-Public Use
  Company Number: None

PATIENT
  Sex: Female
  Weight: 97 kg

DRUGS (7)
  1. HYDROCHLOROTHIAZIDE [Suspect]
     Active Substance: HYDROCHLOROTHIAZIDE
     Indication: Oedema peripheral
     Dosage: 1D1  FORM STRENGTH:12.5MG, UNIT DOSE: 12.5MG / BRAND NAME NOT SPECIFIED
     Dates: start: 20220201, end: 20220206
  2. NITROGLYCERIN [Concomitant]
     Active Substance: NITROGLYCERIN
     Dosage: 0.4MG SPRAY ZN AT POB, FORM STRENGTH:0.4MG/DO / BRAND NAME NOT SPECIFIED, THERAPY START DATE AND END
  3. OMEPRAZOLE [Concomitant]
     Active Substance: OMEPRAZOLE
     Dosage: FORM STRENGTH: 40MG / BRAND NAME NOT SPECIFIED, THERAPY START DATE AND END DATE: ASKU
  4. SOTALOL [Concomitant]
     Active Substance: SOTALOL
     Dosage: FORM STRENGTH: 40MG / BRAND NAME NOT SPECIFIED, THERAPY START DATE AND END DATE: ASKU
  5. LEVOTHYROXINE [Concomitant]
     Active Substance: LEVOTHYROXINE
     Dosage: FORM STRENGTH: 125UG / BRAND NAME NOT SPECIFIED, THERAPY START DATE AND END DATE: ASKU
  6. IRBESARTAN [Concomitant]
     Active Substance: IRBESARTAN
     Dosage: FORM STRENGTH: 300MG / BRAND NAME NOT SPECIFIED, THERAPY START DATE AND END DATE: ASKU
  7. APIXABAN [Concomitant]
     Active Substance: APIXABAN
     Dosage: 10 MILLIGRAM DAILY; 2D5MG, FORM STRENGTH: 5MG / BRAND NAME NOT SPECIFIED, THERAPY START DATE AND END

REACTIONS (2)
  - Hyponatraemia [Recovering/Resolving]
  - Depressed level of consciousness [Recovering/Resolving]
